FAERS Safety Report 8565607-9 (Version None)
Quarter: 2012Q3

REPORT INFORMATION
  Report Type: 
  Country: None (occurrence: None)
  Receive Date: 20120803
  Receipt Date: 20120726
  Transmission Date: 20120928
  Serious: Yes (Hospitalization)
  Sender: FDA-Public Use
  Company Number: JP-UCBSA-062752

PATIENT
  Age: 28 Year
  Sex: Female

DRUGS (7)
  1. PHENOBARBITAL TAB [Concomitant]
     Dosage: DAILY DOSE : 150 MG
     Route: 048
  2. KEPPRA [Suspect]
     Dosage: DAILY DOSE : 3000 MG
     Route: 048
  3. KEPPRA [Suspect]
     Indication: EPILEPSY
     Route: 048
  4. KEPPRA [Suspect]
     Dosage: DAILY DOSE : 6000 MG
     Route: 048
  5. LAMOTRIGINE [Concomitant]
     Dosage: DAILY DOSE : 400 MG
     Route: 048
  6. GABAPENTIN [Concomitant]
     Dosage: DAILY DOSE : 1000 MG
     Route: 048
  7. DIAPP [Concomitant]
     Dosage: DAILY DOSE : 20 MG AS NECESSARY
     Route: 054

REACTIONS (5)
  - HYPERSOMNIA [None]
  - DECREASED ACTIVITY [None]
  - GASTROINTESTINAL HYPOMOTILITY [None]
  - EPILEPSY [None]
  - WEIGHT DECREASED [None]
